FAERS Safety Report 8620943-2 (Version None)
Quarter: 2012Q3

REPORT INFORMATION
  Report Type: 
  Country: None (occurrence: None)
  Receive Date: 20120820
  Receipt Date: 20120820
  Transmission Date: 20120928
  Serious: Yes (Hospitalization)
  Sender: FDA-Public Use
  Company Number: None

PATIENT
  Age: 74 Year
  Sex: Male
  Weight: 85 kg

DRUGS (10)
  1. CALCITRIOL [Concomitant]
  2. BUMETANIDE [Concomitant]
  3. OMEPRAZOLE [Concomitant]
  4. METOLAZONE [Concomitant]
  5. PRADAXA [Suspect]
     Indication: ATRIAL FIBRILLATION
     Dosage: 150MG BID PO
     Route: 048
     Dates: start: 20110502, end: 20110509
  6. PROCRIT [Concomitant]
  7. SPIRONOLACTONE [Concomitant]
  8. ALLOPURINOL [Concomitant]
  9. FERROUS SULFATE TAB [Concomitant]
  10. M.V.I. [Concomitant]

REACTIONS (4)
  - RECTAL HAEMORRHAGE [None]
  - HAEMATOCHEZIA [None]
  - RENAL FAILURE [None]
  - GASTROINTESTINAL HAEMORRHAGE [None]
